FAERS Safety Report 20922884 (Version 1)
Quarter: 2022Q2

REPORT INFORMATION
  Report Type: Spontaneous
  Country: US (occurrence: None)
  Receive Date: 20220607
  Receipt Date: 20220607
  Transmission Date: 20220721
  Serious: No
  Sender: FDA-Public Use
  Company Number: 2022A204871

PATIENT
  Sex: Female
  Weight: 81.6 kg

DRUGS (2)
  1. BYDUREON BCISE [Suspect]
     Active Substance: EXENATIDE
     Indication: Glycosylated haemoglobin
     Route: 058
     Dates: start: 2021
  2. BYDUREON BCISE [Suspect]
     Active Substance: EXENATIDE
     Indication: Weight increased
     Route: 058
     Dates: start: 2021

REACTIONS (4)
  - Injection site bruising [Not Recovered/Not Resolved]
  - Glycosylated haemoglobin abnormal [Unknown]
  - Injection site haemorrhage [Not Recovered/Not Resolved]
  - Decreased appetite [Unknown]
